FAERS Safety Report 4397329-2 (Version None)
Quarter: 2004Q3

REPORT INFORMATION
  Report Type: 
  Country: None (occurrence: None)
  Receive Date: 20040714
  Receipt Date: 20040618
  Transmission Date: 20050211
  Serious: Yes (Disabling)
  Sender: FDA-Public Use
  Company Number: JP-GLAXOSMITHKLINE-B0336219A

PATIENT
  Age: 72 Year
  Sex: Male
  Weight: 49 kg

DRUGS (4)
  1. ZOVIRAX [Suspect]
     Indication: HERPES ZOSTER
     Dosage: 125MG PER DAY
     Route: 042
     Dates: start: 20040616, end: 20040617
  2. DIALYSIS [Concomitant]
  3. VALTREX [Concomitant]
     Indication: HERPES ZOSTER
     Dates: start: 20040616
  4. ZOLPIDEM TARTRATE [Concomitant]
     Indication: INSOMNIA
     Dates: start: 20040616

REACTIONS (5)
  - AGGRESSION [None]
  - DEPRESSED LEVEL OF CONSCIOUSNESS [None]
  - PERSONALITY CHANGE [None]
  - SPEECH DISORDER [None]
  - VOMITING [None]
